FAERS Safety Report 13336992 (Version 1)
Quarter: 2017Q1

REPORT INFORMATION
  Report Type: Report from Study
  Country: JP (occurrence: JP)
  Receive Date: 20170314
  Receipt Date: 20170314
  Transmission Date: 20170428
  Serious: Yes (Hospitalization)
  Sender: FDA-Public Use
  Company Number: JP-ASTRAZENECA-2017SE25521

PATIENT
  Age: 26770 Day
  Sex: Female
  Weight: 58 kg

DRUGS (10)
  1. BRONUCK [Concomitant]
     Active Substance: BROMFENAC SODIUM
     Dosage: OPTIMAL DOSE, DOSE UNKNOWN
     Route: 047
     Dates: start: 20151117, end: 20151216
  2. RINDERON V [Concomitant]
     Active Substance: BETAMETHASONE VALERATE
     Dosage: OPTIMAL DOSE, DOSE UNKNOWN
     Route: 047
     Dates: start: 20151117, end: 20151216
  3. BROMFENAC [Concomitant]
     Active Substance: BROMFENAC SODIUM
     Dosage: OPTIMAL DOSE, DOSE UNKNOWN
     Route: 047
     Dates: start: 20161118, end: 2016
  4. TSUMURA BAKUMONDOTO EXTRACT GRANULES FOR ETHICAL USE [Concomitant]
     Route: 048
     Dates: start: 20161019, end: 20161026
  5. METGLUCO [Concomitant]
     Active Substance: METFORMIN HYDROCHLORIDE
     Indication: TYPE 2 DIABETES MELLITUS
     Route: 048
  6. MEDICON [Concomitant]
     Active Substance: DEXTROMETHORPHAN HYDROBROMIDE
     Route: 048
     Dates: start: 20161019, end: 20161026
  7. CRAVIT [Concomitant]
     Active Substance: LEVOFLOXACIN
     Dosage: OPTIMAL DOSE, DOSE UNKNOWN
     Route: 047
     Dates: start: 20151117, end: 20151216
  8. FORXIGA [Suspect]
     Active Substance: DAPAGLIFLOZIN
     Indication: TYPE 2 DIABETES MELLITUS
     Dosage: MORNINGS
     Route: 048
     Dates: start: 20151130
  9. CRESTOR [Concomitant]
     Active Substance: ROSUVASTATIN CALCIUM
     Route: 048
  10. EQUA [Concomitant]
     Active Substance: VILDAGLIPTIN
     Indication: TYPE 2 DIABETES MELLITUS
     Route: 048

REACTIONS (1)
  - Sudden hearing loss [Recovered/Resolved]

NARRATIVE: CASE EVENT DATE: 20161014
